FAERS Safety Report 6237449-0 (Version None)
Quarter: 2009Q2

REPORT INFORMATION
  Report Type: 
  Country: None (occurrence: None)
  Receive Date: 20090619
  Receipt Date: 20090605
  Transmission Date: 20091009
  Serious: Yes (Other)
  Sender: FDA-Public Use
  Company Number: AU-GENENTECH-254813

PATIENT
  Sex: Female

DRUGS (4)
  1. LUCENTIS [Suspect]
     Indication: MACULAR DEGENERATION
     Dosage: 5 MG, 1/MONTH
     Route: 031
     Dates: start: 20070901
  2. INDOCIN [Concomitant]
     Indication: DRUG USE FOR UNKNOWN INDICATION
  3. ATACAND [Concomitant]
     Indication: DRUG USE FOR UNKNOWN INDICATION
  4. ANTIBIOTIC EYE DROPS NOS [Concomitant]
     Indication: DRUG USE FOR UNKNOWN INDICATION

REACTIONS (1)
  - EYE HAEMORRHAGE [None]
